FAERS Safety Report 4366610-5 (Version None)
Quarter: 2004Q2

REPORT INFORMATION
  Report Type: 
  Country: None (occurrence: None)
  Receive Date: 20040520
  Receipt Date: 20040510
  Transmission Date: 20050107
  Serious: Yes (Life-Threatening, Hospitalization, Other)
  Sender: FDA-Public Use
  Company Number: HQWYE582326APR04

PATIENT
  Age: 45 Year
  Sex: Female
  Weight: 78.09 kg

DRUGS (5)
  1. EFFEXOR XR [Suspect]
     Indication: DEPRESSION
     Dosage: 75 MG 1 X PER 1 DAY, ORAL
     Route: 048
     Dates: start: 20040301, end: 20040329
  2. TETRACYCLINE [Concomitant]
  3. GUAIPHENESIN (GUAIFENESIN) [Concomitant]
  4. SINGULAIR [Concomitant]
  5. PRILOSEC [Concomitant]

REACTIONS (1)
  - STATUS EPILEPTICUS [None]
